FAERS Safety Report 12951511 (Version 1)
Quarter: 2016Q4

REPORT INFORMATION
  Report Type: Report from Study
  Country: None (occurrence: US)
  Receive Date: 20161117
  Receipt Date: 20161117
  Transmission Date: 20170207
  Serious: Yes (Death)
  Sender: FDA-Public Use
  Company Number: US-ABBVIE-16P-163-1783053-00

PATIENT
  Sex: Male

DRUGS (3)
  1. EDTA-AMICAR [Concomitant]
     Indication: HAEMORRHAGE PROPHYLAXIS
  2. VENCLEXTA [Suspect]
     Active Substance: VENETOCLAX
     Indication: CHRONIC LYMPHOCYTIC LEUKAEMIA
     Route: 048
     Dates: start: 201608, end: 2016
  3. EDTA-AMICAR [Concomitant]
     Indication: PLATELET COUNT ABNORMAL
     Route: 065

REACTIONS (2)
  - Platelet count abnormal [Fatal]
  - Death [Fatal]

NARRATIVE: CASE EVENT DATE: 201608
